FAERS Safety Report 18447714 (Version 4)
Quarter: 2020Q4

REPORT INFORMATION
  Report Type: Report from Study
  Country: MX (occurrence: MX)
  Receive Date: 20201101
  Receipt Date: 20201205
  Transmission Date: 20210114
  Serious: Yes (Life-Threatening, Hospitalization, Disabling)
  Sender: FDA-Public Use
  Company Number: NVSC2020MX286497

PATIENT
  Age: 28 Year
  Sex: Female
  Weight: 140 kg

DRUGS (7)
  1. LOSARTAN. [Concomitant]
     Active Substance: LOSARTAN
     Indication: BLOOD PRESSURE INCREASED
     Dosage: 50 MG, QD,EVERY 12 HOURS
     Route: 048
     Dates: start: 20201028
  2. NORVASC [Concomitant]
     Active Substance: AMLODIPINE BESYLATE
     Indication: BLOOD PRESSURE INCREASED
     Dosage: 5 MG, BID
     Route: 048
     Dates: start: 20201028
  3. CO-DIOVAN [Suspect]
     Active Substance: HYDROCHLOROTHIAZIDE\VALSARTAN
     Dosage: 1 DF, QD (160/12.5 MG)
     Route: 048
     Dates: start: 20200914, end: 20201027
  4. TAFIL [Concomitant]
     Active Substance: ALPRAZOLAM
     Indication: ANXIETY
     Dosage: UNK UNK, QD,0.5 (0.25 MG)
     Route: 048
     Dates: start: 20201105
  5. CO-DIOVAN [Suspect]
     Active Substance: HYDROCHLOROTHIAZIDE\VALSARTAN
     Indication: HYPERTENSION
     Dosage: 1 DF, QD  (11 IN THE MORNING), STARTED 3 YRS AGO
     Route: 048
  6. SERTRALINE [Concomitant]
     Active Substance: SERTRALINE HYDROCHLORIDE
     Indication: ANXIETY
     Dosage: 5 MG, QD
     Route: 048
     Dates: start: 20201029
  7. CO-DIOVAN [Suspect]
     Active Substance: HYDROCHLOROTHIAZIDE\VALSARTAN
     Dosage: 1 DF, QD
     Route: 048

REACTIONS (10)
  - Sexual dysfunction [Unknown]
  - Anxiety [Not Recovered/Not Resolved]
  - Anal incontinence [Recovering/Resolving]
  - Dizziness [Unknown]
  - Tachycardia [Recovered/Resolved]
  - Headache [Unknown]
  - Blood pressure decreased [Recovering/Resolving]
  - Palpitations [Recovered/Resolved]
  - Blood pressure increased [Unknown]
  - Chest pain [Recovered/Resolved]

NARRATIVE: CASE EVENT DATE: 202003
